FAERS Safety Report 8102925-2 (Version None)
Quarter: 2012Q1

REPORT INFORMATION
  Report Type: 
  Country: None (occurrence: None)
  Receive Date: 20120201
  Receipt Date: 20120125
  Transmission Date: 20120608
  Serious: Yes (Death, Life-Threatening, Hospitalization)
  Sender: FDA-Public Use
  Company Number: US-CELGENEUS-163-21880-11121683

PATIENT
  Sex: Male

DRUGS (10)
  1. AZITHROMYCIN [Concomitant]
     Indication: BRONCHIECTASIS
     Route: 065
  2. REMERON [Concomitant]
     Route: 065
  3. CARDIZEM CD [Concomitant]
     Route: 065
  4. ALLOPURINOL [Concomitant]
     Route: 065
  5. TYLENOL (CAPLET) [Concomitant]
     Route: 065
  6. MULTI-VITAMINS [Concomitant]
     Route: 065
  7. IRON [Concomitant]
     Route: 065
  8. CASODEX [Concomitant]
     Indication: PROSTATE CANCER
     Route: 065
     Dates: start: 20110301, end: 20111101
  9. REVLIMID [Suspect]
     Indication: MULTIPLE MYELOMA
     Dosage: 10 MILLIGRAM
     Route: 048
     Dates: start: 20110929, end: 20111018
  10. PROTONIX [Concomitant]
     Route: 065

REACTIONS (5)
  - STAPHYLOCOCCAL SEPSIS [None]
  - PNEUMONIA [None]
  - FEBRILE NEUTROPENIA [None]
  - URINARY TRACT INFECTION [None]
  - PANCYTOPENIA [None]
